FAERS Safety Report 7424104-4 (Version None)
Quarter: 2011Q2

REPORT INFORMATION
  Report Type: 
  Country: None (occurrence: None)
  Receive Date: 20110411
  Receipt Date: 20110405
  Transmission Date: 20111010
  Serious: Yes (Death)
  Sender: FDA-Public Use
  Company Number: 2011SP015288

PATIENT
  Age: 63 Year
  Sex: Female

DRUGS (1)
  1. PROVENTIL-HFA [Suspect]
     Indication: PRODUCT USED FOR UNKNOWN INDICATION
     Dosage: 50 MG;

REACTIONS (1)
  - DEATH [None]
